FAERS Safety Report 6441211-3 (Version None)
Quarter: 2009Q4

REPORT INFORMATION
  Report Type: 
  Country: None (occurrence: None)
  Receive Date: 20091116
  Receipt Date: 20091105
  Transmission Date: 20100525
  Serious: Yes (Hospitalization)
  Sender: FDA-Public Use
  Company Number: PL-PFIZER INC-2009293430

PATIENT
  Age: 76 Year
  Sex: Female

DRUGS (4)
  1. METHYLPREDNISOLONE AND METHYLPREDNISOLONE ACETATE AND METHYLPREDNISOLO [Suspect]
     Indication: MYXOEDEMA
     Dosage: 500 MG, 12 INFUSIONS
     Route: 042
  2. METHYLPREDNISOLONE AND METHYLPREDNISOLONE ACETATE AND METHYLPREDNISOLO [Suspect]
     Indication: ENDOCRINE OPHTHALMOPATHY
     Dosage: 500 MG, EVERY OTHER DAY, 3 TIMES A WEEK
     Route: 042
  3. METHYLPREDNISOLONE AND METHYLPREDNISOLONE ACETATE AND METHYLPREDNISOLO [Suspect]
     Dosage: 16 MG, 1X/DAY
     Route: 048
  4. METHYLPREDNISOLONE AND METHYLPREDNISOLONE ACETATE AND METHYLPREDNISOLO [Suspect]

REACTIONS (2)
  - HYPERTRIGLYCERIDAEMIA [None]
  - LEUKOCYTOSIS [None]
